FAERS Safety Report 23475765 (Version 1)
Quarter: 2024Q1

REPORT INFORMATION
  Report Type: Report from Study
  Country: US (occurrence: US)
  Receive Date: 20240204
  Receipt Date: 20240204
  Transmission Date: 20240410
  Serious: No
  Sender: FDA-Public Use
  Company Number: US-EXELIXIS-CABO-23060790

PATIENT
  Age: 67 Year
  Sex: Male

DRUGS (12)
  1. CABOMETYX [Suspect]
     Active Substance: CABOZANTINIB S-MALATE
     Indication: Neuroendocrine tumour
     Dosage: 40 MG, QD
     Dates: start: 20230123
  2. CABOMETYX [Suspect]
     Active Substance: CABOZANTINIB S-MALATE
     Dosage: 40 MG, QD
  3. VITAMIN D NOS [Concomitant]
     Active Substance: VITAMIN D NOS
  4. KCL [Concomitant]
     Active Substance: POTASSIUM CHLORIDE
  5. FUROSEMIDE [Concomitant]
     Active Substance: FUROSEMIDE
  6. LATANOPROST [Concomitant]
     Active Substance: LATANOPROST
  7. CALCIUM [Concomitant]
     Active Substance: CALCIUM
  8. LEVOTHYROXINE [Concomitant]
     Active Substance: LEVOTHYROXINE\LEVOTHYROXINE SODIUM
  9. ALLOPURINOL [Concomitant]
     Active Substance: ALLOPURINOL
  10. NIFEDIPINE [Concomitant]
     Active Substance: NIFEDIPINE
  11. ATENOLOL [Concomitant]
     Active Substance: ATENOLOL
  12. OMEPRAZOLE [Concomitant]
     Active Substance: OMEPRAZOLE

REACTIONS (6)
  - Faeces soft [Not Recovered/Not Resolved]
  - Oral pain [Not Recovered/Not Resolved]
  - Blood pressure increased [Not Recovered/Not Resolved]
  - Hepatic lesion [Not Recovered/Not Resolved]
  - Product dose omission issue [Unknown]
  - Off label use [Unknown]

NARRATIVE: CASE EVENT DATE: 20230401
